FAERS Safety Report 14091591 (Version 1)
Quarter: 2017Q4

REPORT INFORMATION
  Report Type: Spontaneous
  Country: US (occurrence: None)
  Receive Date: 20171013
  Receipt Date: 20171013
  Transmission Date: 20180321
  Serious: Yes (Hospitalization)
  Sender: FDA-Public Use
  Company Number: None

PATIENT
  Age: 63 Year
  Sex: Female

DRUGS (23)
  1. LEVOTHYROXIN [Concomitant]
     Active Substance: LEVOTHYROXINE
  2. LANTUS [Concomitant]
     Active Substance: INSULIN GLARGINE
  3. PROAIR HFA [Concomitant]
     Active Substance: ALBUTEROL SULFATE
  4. CELECOXIB. [Concomitant]
     Active Substance: CELECOXIB
  5. OLMESA MEDOX [Concomitant]
  6. LEVOCETIRIZI [Concomitant]
  7. ADVAIR DISKU [Concomitant]
  8. HUMALOG [Concomitant]
     Active Substance: INSULIN LISPRO
  9. COSENTYX [Suspect]
     Active Substance: SECUKINUMAB
     Indication: PSORIASIS
     Dosage: 300 MG (2 PENS) Q 4 WEEKS SUBCUTANEOUSLY
     Route: 058
  10. METOPROL TAR [Concomitant]
  11. MONTELUKAST [Concomitant]
     Active Substance: MONTELUKAST SODIUM
  12. FLUTICASONE. [Concomitant]
     Active Substance: FLUTICASONE
  13. VICTOZA [Concomitant]
     Active Substance: LIRAGLUTIDE
  14. GABAPENTIN. [Concomitant]
     Active Substance: GABAPENTIN
  15. GLIMEPIRIDE. [Concomitant]
     Active Substance: GLIMEPIRIDE
  16. METOPROL SUC [Concomitant]
  17. CYCLOBENZAPR [Concomitant]
     Active Substance: CYCLOBENZAPRINE
  18. CELEBREX [Concomitant]
     Active Substance: CELECOXIB
  19. MORPHINE SUL [Concomitant]
     Active Substance: MORPHINE SULFATE
  20. IRON FORMULA [Concomitant]
  21. OXYCODONE AND ACETAMINOPHEN [Concomitant]
     Active Substance: ACETAMINOPHEN\OXYCODONE HYDROCHLORIDE
  22. PROAIR RESP [Concomitant]
  23. ANORO ELLIPT [Concomitant]

REACTIONS (3)
  - Dyspnoea [None]
  - Feeling abnormal [None]
  - Oxygen saturation decreased [None]

NARRATIVE: CASE EVENT DATE: 201710
